FAERS Safety Report 17276349 (Version 1)
Quarter: 2020Q1

REPORT INFORMATION
  Report Type: Spontaneous
  Country: US (occurrence: US)
  Receive Date: 20200116
  Receipt Date: 20200116
  Transmission Date: 20200409
  Serious: No
  Sender: FDA-Public Use
  Company Number: US-BAYER-2019-234292

PATIENT
  Age: 50 Year

DRUGS (2)
  1. BETACONNECT [Suspect]
     Active Substance: DEVICE
     Dosage: UNK
  2. BETASERON [Suspect]
     Active Substance: INTERFERON BETA-1B
     Dosage: UNK

REACTIONS (3)
  - Expired device used [None]
  - Device malfunction [None]
  - Injection site bruising [None]
